FAERS Safety Report 9419038 (Version 2)
Quarter: 2013Q3

REPORT INFORMATION
  Report Type: Report from Study
  Country: BR (occurrence: BR)
  Receive Date: 20130725
  Receipt Date: 20130923
  Transmission Date: 20140515
  Serious: Yes (Hospitalization, Other)
  Sender: FDA-Public Use
  Company Number: PHHY2013BR078375

PATIENT
  Age: 39 Year
  Sex: Female

DRUGS (6)
  1. EXJADE [Suspect]
     Indication: IRON OVERLOAD
     Dosage: UNK UKN, UNK
  2. OMEPRAZOLE [Concomitant]
     Dosage: UNK UKN, UNK
  3. ACIDO FOLICO [Concomitant]
     Dosage: UNK UKN, UNK
  4. DIPYRONE [Concomitant]
     Indication: PAIN
     Dosage: UNK UKN, UNK
  5. PARACETAMOL [Concomitant]
     Indication: PAIN
     Dosage: UNK UKN, UNK
  6. CODEINE [Concomitant]
     Indication: PAIN
     Dosage: UNK UKN, UNK

REACTIONS (4)
  - Acute chest syndrome [Recovered/Resolved]
  - Serum ferritin increased [Not Recovered/Not Resolved]
  - Depression [Not Recovered/Not Resolved]
  - Drug ineffective [Not Recovered/Not Resolved]
